FAERS Safety Report 25737016 (Version 1)
Quarter: 2025Q3

REPORT INFORMATION
  Report Type: Report from Study
  Country: IN (occurrence: IN)
  Receive Date: 20250828
  Receipt Date: 20250828
  Transmission Date: 20251020
  Serious: Yes (Death)
  Sender: ROCHE
  Company Number: IN-ROCHE-10000375892

PATIENT
  Age: 60 Month
  Sex: Male
  Weight: 19 kg

DRUGS (1)
  1. MYCOPHENOLATE MOFETIL [Suspect]
     Active Substance: MYCOPHENOLATE MOFETIL
     Indication: Prophylaxis against transplant rejection
     Route: 065

REACTIONS (1)
  - Metastases to lung [Fatal]
